FAERS Safety Report 5793051-6 (Version None)
Quarter: 2008Q2

REPORT INFORMATION
  Report Type: 
  Country: None (occurrence: None)
  Receive Date: 20080627
  Receipt Date: 20080624
  Transmission Date: 20081010
  Serious: Yes (Hospitalization, Other)
  Sender: FDA-Public Use
  Company Number: US-ASTRAZENECA-2008UW05659

PATIENT
  Age: 88 Year
  Sex: Female
  Weight: 69.5 kg

DRUGS (5)
  1. ARIMIDEX [Suspect]
     Indication: BREAST CANCER
     Route: 048
     Dates: start: 20070723, end: 20080303
  2. LISINOPRIL [Suspect]
     Route: 048
  3. BENICAR [Suspect]
     Indication: HYPERTENSION
     Dosage: 20 MG 1/2 TABLET DAILY
     Route: 048
  4. FOSAMAX [Concomitant]
     Route: 048
  5. TOPROL-XL [Concomitant]
     Route: 048

REACTIONS (11)
  - ALOPECIA [None]
  - BACK INJURY [None]
  - COUGH [None]
  - DIZZINESS [None]
  - FALL [None]
  - HOT FLUSH [None]
  - HYPERTENSION [None]
  - OSTEOPENIA [None]
  - PAIN IN EXTREMITY [None]
  - QUALITY OF LIFE DECREASED [None]
  - SYNCOPE [None]
